FAERS Safety Report 11165886 (Version 2)
Quarter: 2015Q2

REPORT INFORMATION
  Report Type: Report from Study
  Country: US (occurrence: US)
  Receive Date: 20150604
  Receipt Date: 20150610
  Transmission Date: 20150821
  Serious: Yes (Other)
  Sender: FDA-Public Use
  Company Number: US-GILEAD-2015-0149770

PATIENT
  Age: 57 Year
  Sex: Female

DRUGS (1)
  1. LEDIPASVIR/SOFOSBUVIR [Suspect]
     Active Substance: LEDIPASVIR\SOFOSBUVIR
     Indication: CHRONIC HEPATITIS C
     Dosage: 1 DF, UNK
     Route: 048
     Dates: start: 20150317

REACTIONS (14)
  - Lower respiratory tract infection [Unknown]
  - Pyrexia [Unknown]
  - Sensitivity of teeth [Unknown]
  - Fatigue [Unknown]
  - Vomiting [Unknown]
  - Urinary tract pain [Unknown]
  - Feeling abnormal [Unknown]
  - Alanine aminotransferase abnormal [Unknown]
  - Aspartate aminotransferase abnormal [Unknown]
  - Constipation [Unknown]
  - Petechiae [Unknown]
  - Chills [Unknown]
  - Anxiety [Unknown]
  - Headache [Unknown]
